FAERS Safety Report 10572177 (Version 1)
Quarter: 2014Q4

REPORT INFORMATION
  Report Type: Spontaneous
  Country: FR (occurrence: FR)
  Receive Date: 20141108
  Receipt Date: 20141108
  Transmission Date: 20150529
  Serious: Yes (Other)
  Sender: FDA-Public Use
  Company Number: FR-ABBVIE-14K-056-1304300-00

PATIENT
  Age: 34 Year
  Sex: Female

DRUGS (1)
  1. HUMIRA [Suspect]
     Active Substance: ADALIMUMAB
     Indication: CROHN^S DISEASE
     Dosage: DURATION 2 YEARS
     Route: 065

REACTIONS (4)
  - Hypoalbuminaemia [Unknown]
  - Oedema genital [Unknown]
  - Oedema peripheral [Unknown]
  - Leukopenia [Unknown]

NARRATIVE: CASE EVENT DATE: 201410
